FAERS Safety Report 8740730 (Version 3)
Quarter: 2013Q1

REPORT INFORMATION
  Report Type: Spontaneous
  Country: US (occurrence: US)
  Receive Date: 20120823
  Receipt Date: 20130215
  Transmission Date: 20140127
  Serious: Yes (Hospitalization, Other)
  Sender: FDA-Public Use
  Company Number: US-ASTRAZENECA-2012SE57612

PATIENT
  Age: 64 Year
  Sex: Female

DRUGS (1)
  1. SYMBICORT PMDI [Suspect]
     Indication: ASTHMA
     Dosage: 160/4.5 MCG, DAILY
     Route: 055

REACTIONS (16)
  - Cerebrovascular accident [Unknown]
  - Spinal cord compression [Unknown]
  - Carpal tunnel syndrome [Unknown]
  - Lung disorder [Unknown]
  - Pulmonary thrombosis [Unknown]
  - Asthma [Unknown]
  - Weight increased [Unknown]
  - Osteoarthritis [Unknown]
  - Breath sounds abnormal [Unknown]
  - Dyspnoea [Unknown]
  - Respiratory disorder [Unknown]
  - Asthma [Unknown]
  - Tension [Unknown]
  - Nervousness [Unknown]
  - Off label use [Unknown]
  - Drug ineffective [Unknown]
